FAERS Safety Report 9841869 (Version 1)
Quarter: 2013Q4

REPORT INFORMATION
  Report Type: Spontaneous
  Country: US (occurrence: None)
  Receive Date: 20131219
  Receipt Date: 20131219
  Transmission Date: 20140711
  Serious: Yes (Death)
  Sender: FDA-Public Use
  Company Number: 163-20785-13044877

PATIENT
  Age: 76 Year
  Sex: Male

DRUGS (3)
  1. THALOMID [Suspect]
     Indication: PLASMA CELL MYELOMA
     Dosage: 50 MG, 28 IN 28 D, PO
     Route: 048
     Dates: start: 20121129, end: 2013
  2. METAMUCIL THERAPY FOR REGULARITY [Concomitant]
  3. MULTIHEALTH FIBER (POLYCARBOPHIL CALCIUM) [Concomitant]
     Indication: PLASMA CELL MYELOMA

REACTIONS (1)
  - Plasma cell myeloma [None]
